FAERS Safety Report 5083299-0 (Version None)
Quarter: 2006Q3

REPORT INFORMATION
  Report Type: 
  Country: None (occurrence: None)
  Receive Date: 20060818
  Receipt Date: 20060807
  Transmission Date: 20061208
  Serious: Yes (Hospitalization)
  Sender: FDA-Public Use
  Company Number: DE-AMGEN-UK189214

PATIENT
  Sex: Female

DRUGS (1)
  1. PALIFERMIN [Suspect]
     Indication: RADIATION DYSPHAGIA
     Route: 040
     Dates: start: 20051230, end: 20060210

REACTIONS (3)
  - DYSPHAGIA [None]
  - OESOPHAGEAL STENOSIS [None]
  - SCAR [None]
